FAERS Safety Report 9031402 (Version 1)
Quarter: 2013Q1

REPORT INFORMATION
  Report Type: Spontaneous
  Country: JP (occurrence: JP)
  Receive Date: 20130124
  Receipt Date: 20130124
  Transmission Date: 20140127
  Serious: Yes (Life-Threatening, Hospitalization)
  Sender: FDA-Public Use
  Company Number: JP-ASTRAZENECA-2012SE85244

PATIENT
  Age: 72 Year
  Sex: Female

DRUGS (8)
  1. BLOPRESS [Suspect]
     Indication: HYPERTENSION
     Route: 048
     Dates: end: 20121013
  2. RENIVACE [Suspect]
     Indication: HYPERTENSION
     Route: 048
     Dates: end: 20121013
  3. AMARYL [Concomitant]
     Indication: DIABETES MELLITUS
     Route: 048
  4. AMARYL [Concomitant]
     Indication: DIABETES MELLITUS
     Route: 048
     Dates: start: 20121026
  5. GLACTIV [Concomitant]
     Indication: DIABETES MELLITUS
     Route: 048
  6. GLACTIV [Concomitant]
     Indication: DIABETES MELLITUS
     Route: 048
     Dates: start: 20121026
  7. METGLUCO [Concomitant]
     Indication: DIABETES MELLITUS
     Route: 048
  8. METGLUCO [Concomitant]
     Indication: DIABETES MELLITUS
     Route: 048
     Dates: start: 20121026

REACTIONS (2)
  - Inappropriate antidiuretic hormone secretion [Recovering/Resolving]
  - Hyponatraemia [Recovering/Resolving]
